FAERS Safety Report 16507224 (Version 4)
Quarter: 2019Q3

REPORT INFORMATION
  Report Type: Spontaneous
  Country: US (occurrence: US)
  Receive Date: 20190701
  Receipt Date: 20190905
  Transmission Date: 20191004
  Serious: No
  Sender: FDA-Public Use
  Company Number: US-PFIZER INC-2019170312

PATIENT
  Age: 45 Year
  Sex: Female

DRUGS (1)
  1. LYRICA [Suspect]
     Active Substance: PREGABALIN
     Indication: FIBROMYALGIA
     Dosage: 75 MG, 4X/DAY
     Route: 048

REACTIONS (4)
  - Drug withdrawal syndrome [Unknown]
  - Intentional product misuse [Unknown]
  - Feeling abnormal [Unknown]
  - Pain [Unknown]
